FAERS Safety Report 9538737 (Version 2)
Quarter: 2013Q4

REPORT INFORMATION
  Report Type: Report from Study
  Country: US (occurrence: US)
  Receive Date: 20130920
  Receipt Date: 20131003
  Transmission Date: 20140711
  Serious: Yes (Other)
  Sender: FDA-Public Use
  Company Number: PHEH2013US019634

PATIENT
  Age: 77 Year
  Sex: Female
  Weight: 68 kg

DRUGS (12)
  1. TOBRAMYCIN [Suspect]
     Indication: BRONCHIECTASIS
     Dosage: 1 DF, BID
     Dates: start: 20130516
  2. TOBRAMYCIN [Suspect]
     Dosage: 1 DF, BID
  3. TOBI [Suspect]
     Indication: BRONCHIECTASIS
     Dosage: 300 MG, BID
     Dates: start: 20130915, end: 20130917
  4. TOBI [Suspect]
     Indication: PSEUDOMONAL BACTERAEMIA
  5. XANAX [Concomitant]
     Dosage: UNK UKN, UNK
  6. REMERON [Concomitant]
     Dosage: UNK UKN, UNK
  7. TRAMADOL [Concomitant]
     Dosage: UNK UKN, UNK
  8. BUDESONIDE [Concomitant]
     Dosage: UNK UKN, UNK
  9. ADDERALL [Concomitant]
     Dosage: UNK UKN, UNK
  10. ZANTAC [Concomitant]
     Dosage: UNK UKN, UNK
  11. INDERAL [Concomitant]
     Dosage: UNK UKN, UNK
  12. DUONEB [Concomitant]
     Dosage: UNK UKN, UNK

REACTIONS (4)
  - Haemoptysis [Recovered/Resolved]
  - PO2 decreased [Recovering/Resolving]
  - Heart rate increased [Recovering/Resolving]
  - Fall [Recovering/Resolving]
